FAERS Safety Report 9366478 (Version 1)
Quarter: 2013Q2

REPORT INFORMATION
  Report Type: Spontaneous
  Country: CH (occurrence: CH)
  Receive Date: 20130625
  Receipt Date: 20130625
  Transmission Date: 20140414
  Serious: Yes (Other)
  Sender: FDA-Public Use
  Company Number: CH-JNJFOC-JACGER2000001717

PATIENT
  Age: 91 Year
  Sex: Female

DRUGS (7)
  1. RISPERDAL [Suspect]
     Indication: DEMENTIA
     Route: 048
     Dates: start: 20000924
  2. RISPERDAL [Suspect]
     Indication: DEMENTIA
     Route: 048
     Dates: start: 20000911, end: 20000923
  3. ENTUMIN [Suspect]
     Indication: PRODUCT USED FOR UNKNOWN INDICATION
     Route: 048
     Dates: start: 20000915
  4. LASIX [Suspect]
     Indication: CARDIAC FAILURE
     Route: 048
     Dates: start: 20000914, end: 20000923
  5. TENORMIN [Suspect]
     Indication: ATRIAL FIBRILLATION
     Route: 048
     Dates: start: 20000915, end: 20000923
  6. CITALOPRAM HYDROBROMIDE [Suspect]
     Indication: PRODUCT USED FOR UNKNOWN INDICATION
     Route: 048
     Dates: start: 20000915
  7. BACTRIM FORTE [Concomitant]
     Route: 048
     Dates: start: 20000921, end: 20000929

REACTIONS (1)
  - Syncope [Recovered/Resolved]
